FAERS Safety Report 7200978-7 (Version None)
Quarter: 2010Q4

REPORT INFORMATION
  Report Type: 
  Country: None (occurrence: None)
  Receive Date: 20101228
  Receipt Date: 20101220
  Transmission Date: 20110411
  Serious: Yes (Life-Threatening, Hospitalization, Disabling)
  Sender: FDA-Public Use
  Company Number: GB-MERCK-1012GBR00028

PATIENT
  Age: 69 Year
  Sex: Female

DRUGS (16)
  1. ZOCOR [Suspect]
     Route: 048
     Dates: start: 20061201, end: 20101022
  2. AMIODARONE [Suspect]
     Route: 048
     Dates: start: 20091001, end: 20101022
  3. ASPIRIN [Concomitant]
     Route: 065
  4. BALSALAZIDE DISODIUM [Concomitant]
     Route: 065
  5. BUMETANIDE [Concomitant]
     Route: 065
     Dates: start: 20101028
  6. CITALOPRAM [Concomitant]
     Route: 065
  7. CODEINE PHOSPHATE [Concomitant]
     Route: 065
  8. FLOXACILLIN [Concomitant]
     Route: 065
     Dates: start: 20101021
  9. FUROSEMIDE [Concomitant]
     Route: 065
     Dates: end: 20101022
  10. NEBIVOLOL [Concomitant]
     Route: 065
     Dates: end: 20101021
  11. NEBIVOLOL [Concomitant]
     Route: 065
  12. ACETAMINOPHEN [Concomitant]
     Route: 065
  13. PERINDOPRIL [Concomitant]
     Route: 065
  14. SPIRONOLACTONE [Concomitant]
     Route: 065
  15. TRIMETHOPRIM [Concomitant]
     Route: 065
     Dates: start: 20101101
  16. WARFARIN [Concomitant]
     Route: 065

REACTIONS (5)
  - ASTHENIA [None]
  - INTERNATIONAL NORMALISED RATIO INCREASED [None]
  - MOBILITY DECREASED [None]
  - PAIN IN EXTREMITY [None]
  - RHABDOMYOLYSIS [None]
